FAERS Safety Report 17068334 (Version 1)
Quarter: 2019Q4

REPORT INFORMATION
  Report Type: Spontaneous
  Country: NL (occurrence: NL)
  Receive Date: 20191123
  Receipt Date: 20191123
  Transmission Date: 20200122
  Serious: Yes (Life-Threatening, Hospitalization)
  Sender: FDA-Public Use
  Company Number: NL-ACCORD-161815

PATIENT
  Age: 66 Year
  Sex: Male

DRUGS (8)
  1. METOPROLOL. [Concomitant]
     Active Substance: METOPROLOL
     Dosage: 1DD1, STRENGTH: 100 MG
  2. ALLOPURINOL. [Concomitant]
     Active Substance: ALLOPURINOL
     Dosage: 1DD1, STRENGTH: 300 MG
  3. HYDROCHLOROTHIAZIDE. [Concomitant]
     Active Substance: HYDROCHLOROTHIAZIDE
     Dosage: 1DD1, STRENGTH: 12.5 MG
  4. DICLOFENAC [Concomitant]
     Active Substance: DICLOFENAC
     Dosage: STRENGTH: 50 MG
  5. AMLODIPINE [Concomitant]
     Active Substance: AMLODIPINE BESYLATE
     Dosage: 1DD1, STRENGTH: 5MG
  6. OMEPRAZOLE. [Concomitant]
     Active Substance: OMEPRAZOLE
     Dosage: 1-2DD1, STRENGTH: 20 MG
  7. SIMVASTATIN. [Concomitant]
     Active Substance: SIMVASTATIN
     Dosage: 1DD1, STRENGTH: 40 MG
  8. LISINOPRIL. [Suspect]
     Active Substance: LISINOPRIL
     Indication: PRODUCT USED FOR UNKNOWN INDICATION
     Dosage: STRENGTH: 10 MG, 1 TIME DAILY 1 TABLET
     Dates: start: 2018, end: 20190904

REACTIONS (3)
  - Ileus [Recovered/Resolved]
  - Pharyngeal swelling [Recovered/Resolved]
  - Intestinal angioedema [Recovered/Resolved]

NARRATIVE: CASE EVENT DATE: 20190904
